FAERS Safety Report 5388395-6 (Version None)
Quarter: 2007Q3

REPORT INFORMATION
  Report Type: 
  Country: None (occurrence: None)
  Receive Date: 20070716
  Receipt Date: 20070703
  Transmission Date: 20080115
  Serious: Yes (Hospitalization, Other)
  Sender: FDA-Public Use
  Company Number: JP-PFIZER INC-2007052173

PATIENT
  Sex: Male
  Weight: 24.5 kg

DRUGS (5)
  1. SOLU-CORTEF [Suspect]
     Indication: ABDOMINAL PAIN
     Route: 042
     Dates: start: 20060601, end: 20070611
  2. GASTER [Concomitant]
     Route: 042
     Dates: start: 20070609, end: 20070611
  3. ADONA [Concomitant]
     Route: 048
     Dates: start: 20070605, end: 20070611
  4. PANSPORIN [Concomitant]
     Route: 042
     Dates: start: 20070606, end: 20070611
  5. CINAL [Concomitant]
     Route: 048
     Dates: start: 20070605, end: 20070611

REACTIONS (2)
  - HEPATOMEGALY [None]
  - SPLENOMEGALY [None]
